FAERS Safety Report 15450169 (Version 1)
Quarter: 2018Q3

REPORT INFORMATION
  Report Type: Spontaneous
  Country: US (occurrence: US)
  Receive Date: 20180927
  Receipt Date: 20180927
  Transmission Date: 20181010
  Serious: Yes (Hospitalization)
  Sender: FDA-Public Use
  Company Number: None

PATIENT
  Age: 67 Year
  Sex: Female

DRUGS (16)
  1. ATENOLOL TAB 50MG [Concomitant]
  2. LISINO/HCTZ TAB 20?12.5MG [Concomitant]
  3. ONDANSETRON TAB 8MG [Concomitant]
     Active Substance: ONDANSETRON
  4. FORTEO [Suspect]
     Active Substance: TERIPARATIDE
     Indication: INTERVERTEBRAL DISC DEGENERATION
  5. LEVOFLOXACIN TAB 750MG [Concomitant]
  6. GABAPENTIN CAP 300MG [Concomitant]
     Active Substance: GABAPENTIN
  7. AMITRIPTYLIN TAB 100MG [Concomitant]
  8. OXYCODONE TAB 5MG [Concomitant]
     Active Substance: OXYCODONE
  9. HYDROCO/APAP TAB 10?325MG [Concomitant]
  10. OXYCODONE TAB 15MG [Concomitant]
  11. CIPROFLOXACIN TAB 500MG [Concomitant]
  12. SENNA S TAB 8.6?50MG [Concomitant]
  13. MORPHINE SUL TAB 15MG ER [Concomitant]
  14. IBUPROFEN TAB 800MG [Concomitant]
     Active Substance: IBUPROFEN
  15. POT CHLORIDE TAB 10MEQ ER [Concomitant]
  16. ASPIR?LOW TAB 81MG EC [Concomitant]

REACTIONS (1)
  - Spinal operation [None]

NARRATIVE: CASE EVENT DATE: 20180816
